FAERS Safety Report 7367320-2 (Version None)
Quarter: 2011Q1

REPORT INFORMATION
  Report Type: 
  Country: None (occurrence: None)
  Receive Date: 20110322
  Receipt Date: 20110311
  Transmission Date: 20110831
  Serious: No
  Sender: FDA-Public Use
  Company Number: US-JNJFOC-20110306139

PATIENT
  Age: 27 Year
  Sex: Female

DRUGS (1)
  1. INVEGA [Suspect]
     Indication: ILL-DEFINED DISORDER
     Route: 048

REACTIONS (2)
  - GALACTORRHOEA [None]
  - BLOOD PROLACTIN INCREASED [None]
